FAERS Safety Report 8143974-8 (Version None)
Quarter: 2012Q1

REPORT INFORMATION
  Report Type: 
  Country: None (occurrence: None)
  Receive Date: 20120217
  Receipt Date: 20120217
  Transmission Date: 20120608
  Serious: No
  Sender: FDA-Public Use
  Company Number: None

PATIENT
  Age: 37 Year
  Sex: Female
  Weight: 74.842 kg

DRUGS (1)
  1. OXYCODONE/ACETAMINOPHEN [Suspect]
     Indication: PANCREATITIS CHRONIC
     Dosage: 10-325
     Route: 048
     Dates: start: 20120208, end: 20120213

REACTIONS (2)
  - PRODUCT SUBSTITUTION ISSUE [None]
  - DRUG INEFFECTIVE [None]
